FAERS Safety Report 9606634 (Version 1)
Quarter: 2013Q4

REPORT INFORMATION
  Report Type: Spontaneous
  Country: US (occurrence: US)
  Receive Date: 20131008
  Receipt Date: 20131008
  Transmission Date: 20140711
  Serious: No
  Sender: FDA-Public Use
  Company Number: US-AMGEN-USASP2013057474

PATIENT
  Age: 58 Year
  Sex: Female

DRUGS (10)
  1. PROLIA [Suspect]
     Indication: OSTEOPOROSIS POSTMENOPAUSAL
     Dosage: UNK
     Route: 065
     Dates: start: 20130719
  2. PREDNISONE [Concomitant]
     Dosage: 5 MG, UNK
     Route: 065
  3. LANTUS [Concomitant]
     Dosage: UNK
     Route: 065
  4. NOVOLOG [Concomitant]
     Dosage: UNK
     Route: 065
  5. SYNTHROID [Concomitant]
     Dosage: UNK
     Route: 065
  6. LIPITOR [Concomitant]
     Dosage: UNK
     Route: 065
  7. ZETIA [Concomitant]
     Dosage: UNK
     Route: 065
  8. VITAMIN D                          /00107901/ [Concomitant]
     Dosage: UNK
     Route: 065
  9. LISINOPRIL [Concomitant]
     Dosage: UNK
     Route: 065
  10. AZATHIOPRINE [Concomitant]
     Dosage: UNK
     Route: 065

REACTIONS (1)
  - Blood glucose increased [Recovered/Resolved]
